FAERS Safety Report 6530154-2 (Version None)
Quarter: 2009Q4

REPORT INFORMATION
  Report Type: 
  Country: None (occurrence: None)
  Receive Date: 20091231
  Receipt Date: 20091222
  Transmission Date: 20100525
  Serious: No
  Sender: FDA-Public Use
  Company Number: 2009SP041166

PATIENT
  Age: 77 Year
  Sex: Female

DRUGS (6)
  1. MIRTAZAPINE [Suspect]
     Indication: DEPRESSION
     Dosage: 15 MG;QD;PO
     Route: 048
     Dates: start: 20091203, end: 20091207
  2. MIRTAZAPINE [Suspect]
     Indication: INSOMNIA
     Dosage: 15 MG;QD;PO
     Route: 048
     Dates: start: 20091203, end: 20091207
  3. FLUVASTATIN SODIUM [Concomitant]
  4. VALSARTAN [Concomitant]
  5. ETIZOLAM [Concomitant]
  6. AMOBAN [Concomitant]

REACTIONS (3)
  - AGGRESSION [None]
  - LIBIDO INCREASED [None]
  - PHYSICAL ASSAULT [None]
